FAERS Safety Report 6780904-5 (Version None)
Quarter: 2010Q2

REPORT INFORMATION
  Report Type: 
  Country: None (occurrence: None)
  Receive Date: 20100621
  Receipt Date: 20100614
  Transmission Date: 20101027
  Serious: Yes (Hospitalization)
  Sender: FDA-Public Use
  Company Number: GB-ELI_LILLY_AND_COMPANY-GB201006004283

PATIENT
  Age: 49 Year
  Sex: Male
  Weight: 99.9 kg

DRUGS (7)
  1. BYETTA [Suspect]
     Dosage: 5 UG, 2/D
     Route: 058
     Dates: start: 20080923, end: 20090511
  2. LITHIUM [Concomitant]
     Indication: BIPOLAR DISORDER
     Dosage: 800 MG, DAILY (1/D)
     Route: 048
     Dates: start: 20050101, end: 20090511
  3. AMLODIPINE [Concomitant]
     Indication: BLOOD PRESSURE MANAGEMENT
     Dosage: 10 MG, DAILY (1/D)
     Route: 048
  4. ASPIRIN [Concomitant]
     Indication: DIABETES MELLITUS
     Dosage: 75 MG, DAILY (1/D)
     Route: 048
  5. ATORVASTATIN [Concomitant]
     Indication: HYPERCHOLESTEROLAEMIA
     Dosage: 40 MG, DAILY (1/D)
     Route: 048
  6. METFORMIN HCL [Concomitant]
     Indication: DIABETES MELLITUS
     Dosage: 500 MG, 3/D
     Route: 048
  7. NAPROXEN [Concomitant]
     Indication: GOUT
     Dosage: 500 MG, AS NEEDED
     Dates: end: 20090511

REACTIONS (1)
  - RENAL FAILURE ACUTE [None]
